FAERS Safety Report 21005389 (Version 1)
Quarter: 2022Q2

REPORT INFORMATION
  Report Type: Spontaneous
  Country: US (occurrence: US)
  Receive Date: 20220624
  Receipt Date: 20220624
  Transmission Date: 20220721
  Serious: No
  Sender: FDA-Public Use
  Company Number: US-PFIZER INC-202200876257

PATIENT
  Age: 66 Year
  Sex: Male

DRUGS (1)
  1. PAXLOVID [Suspect]
     Active Substance: NIRMATRELVIR\RITONAVIR
     Indication: COVID-19 treatment
     Dosage: UNK
     Dates: start: 20220620

REACTIONS (4)
  - Intentional product misuse [Unknown]
  - Decreased appetite [Unknown]
  - Illness [Unknown]
  - Eating disorder [Unknown]

NARRATIVE: CASE EVENT DATE: 20220601
